FAERS Safety Report 14848853 (Version 3)
Quarter: 2019Q2

REPORT INFORMATION
  Report Type: Spontaneous
  Country: US (occurrence: US)
  Receive Date: 20180504
  Receipt Date: 20190415
  Transmission Date: 20190711
  Serious: Yes (Other)
  Sender: FDA-Public Use
  Company Number: US-ASTRAZENECA-2018SE52208

PATIENT
  Age: 25306 Day
  Sex: Male
  Weight: 93.4 kg

DRUGS (27)
  1. PLAVIX [Concomitant]
     Active Substance: CLOPIDOGREL BISULFATE
  2. HYDROCODONE BITARTRATE AND ACETAMINOPHEN [Concomitant]
     Active Substance: ACETAMINOPHEN\HYDROCODONE BITARTRATE
  3. PROVENTIL HFA [Concomitant]
     Active Substance: ALBUTEROL SULFATE
  4. LOSARTAN. [Concomitant]
     Active Substance: LOSARTAN
  5. FENOFIBRATE. [Concomitant]
     Active Substance: FENOFIBRATE
  6. NEXIUM [Suspect]
     Active Substance: ESOMEPRAZOLE MAGNESIUM
     Route: 048
     Dates: start: 20120214
  7. AMLODIPINE [Concomitant]
     Active Substance: AMLODIPINE BESYLATE
  8. FLUTICASONE. [Concomitant]
     Active Substance: FLUTICASONE
  9. LISINOPRIL. [Concomitant]
     Active Substance: LISINOPRIL
  10. NEXIUM 24HR [Suspect]
     Active Substance: ESOMEPRAZOLE MAGNESIUM
     Route: 048
     Dates: start: 2012, end: 2016
  11. VICODIN [Concomitant]
     Active Substance: ACETAMINOPHEN\HYDROCODONE BITARTRATE
  12. LEVOFLOXACIN. [Concomitant]
     Active Substance: LEVOFLOXACIN
  13. CARVEDILOL. [Concomitant]
     Active Substance: CARVEDILOL
  14. TAMSULOSIN [Concomitant]
     Active Substance: TAMSULOSIN
  15. ASPIRIN. [Concomitant]
     Active Substance: ASPIRIN
  16. SYMBICORT [Concomitant]
     Active Substance: BUDESONIDE\FORMOTEROL FUMARATE DIHYDRATE
  17. SPIRIVA [Concomitant]
     Active Substance: TIOTROPIUM BROMIDE MONOHYDRATE
  18. CARVEDILOL. [Concomitant]
     Active Substance: CARVEDILOL
  19. LISINOPRIL. [Concomitant]
     Active Substance: LISINOPRIL
  20. VYTORIN [Concomitant]
     Active Substance: EZETIMIBE\SIMVASTATIN
  21. TAMSULOSIN [Concomitant]
     Active Substance: TAMSULOSIN
  22. CLOPIDOGREL [Concomitant]
     Active Substance: CLOPIDOGREL BISULFATE
  23. ATORVASTATIN [Concomitant]
     Active Substance: ATORVASTATIN
  24. NEXIUM [Suspect]
     Active Substance: ESOMEPRAZOLE MAGNESIUM
     Route: 048
     Dates: start: 2012, end: 2016
  25. PREDNISONE. [Concomitant]
     Active Substance: PREDNISONE
  26. NEXIUM [Suspect]
     Active Substance: ESOMEPRAZOLE MAGNESIUM
     Route: 048
     Dates: start: 20120717
  27. FENOFIBRATE. [Concomitant]
     Active Substance: FENOFIBRATE

REACTIONS (3)
  - Chronic kidney disease [Not Recovered/Not Resolved]
  - Hyperparathyroidism secondary [Unknown]
  - Nephrogenic anaemia [Unknown]

NARRATIVE: CASE EVENT DATE: 20120217
